FAERS Safety Report 6198680-6 (Version None)
Quarter: 2009Q2

REPORT INFORMATION
  Report Type: 
  Country: None (occurrence: None)
  Receive Date: 20090521
  Receipt Date: 20090507
  Transmission Date: 20091009
  Serious: Yes (Hospitalization)
  Sender: FDA-Public Use
  Company Number: JP-GENENTECH-283200

PATIENT
  Age: 70 Year
  Sex: Male

DRUGS (4)
  1. AVASTIN [Suspect]
     Indication: LARGE INTESTINE CARCINOMA
     Dosage: UNK
     Route: 041
  2. CALCIUM LEVOFOLINATE [Suspect]
     Indication: LARGE INTESTINE CARCINOMA
     Dosage: UNK
     Route: 041
  3. OXALIPLATIN [Concomitant]
     Indication: LARGE INTESTINE CARCINOMA
  4. FLUOROURACIL [Concomitant]
     Indication: LARGE INTESTINE CARCINOMA

REACTIONS (1)
  - ANAPHYLACTOID REACTION [None]
